FAERS Safety Report 17820683 (Version 1)
Quarter: 2020Q2

REPORT INFORMATION
  Report Type: Spontaneous
  Country: CA (occurrence: CA)
  Receive Date: 20200525
  Receipt Date: 20200525
  Transmission Date: 20200714
  Serious: Yes (Other)
  Sender: FDA-Public Use
  Company Number: CA-PFIZER INC-2020204921

PATIENT
  Age: 68 Year
  Sex: Female
  Weight: 86 kg

DRUGS (5)
  1. INDAPAMIDE. [Concomitant]
     Active Substance: INDAPAMIDE
     Dosage: UNK
  2. CANDESARTAN. [Concomitant]
     Active Substance: CANDESARTAN
     Dosage: UNK
  3. DOCETAXEL. [Suspect]
     Active Substance: DOCETAXEL
     Indication: BREAST CANCER
     Dosage: 150 MG, EVERY 3 WEEKS
     Route: 042
  4. CYCLOPHOSPHAMIDE. [Concomitant]
     Active Substance: CYCLOPHOSPHAMIDE
     Dosage: UNK
  5. METFORMIN [Concomitant]
     Active Substance: METFORMIN HYDROCHLORIDE
     Dosage: UNK

REACTIONS (3)
  - Nephropathy toxic [Recovering/Resolving]
  - Blood creatinine increased [Recovering/Resolving]
  - Acute kidney injury [Recovering/Resolving]
